FAERS Safety Report 6872679-6 (Version None)
Quarter: 2010Q3

REPORT INFORMATION
  Report Type: 
  Country: None (occurrence: None)
  Receive Date: 20100723
  Receipt Date: 20081021
  Transmission Date: 20110219
  Serious: No
  Sender: FDA-Public Use
  Company Number: US-PFIZER INC-2008088681

PATIENT
  Sex: Female
  Weight: 66.22 kg

DRUGS (2)
  1. CHANTIX [Suspect]
     Indication: SMOKING CESSATION THERAPY
     Route: 048
     Dates: start: 20081001
  2. PREVACID [Concomitant]

REACTIONS (4)
  - ABDOMINAL DISTENSION [None]
  - FEELING COLD [None]
  - HOT FLUSH [None]
  - NAUSEA [None]
